FAERS Safety Report 9728107 (Version 2)
Quarter: 2014Q1

REPORT INFORMATION
  Report Type: Spontaneous
  Country: US (occurrence: US)
  Receive Date: 20131204
  Receipt Date: 20140119
  Transmission Date: 20141002
  Serious: Yes (Hospitalization, Other)
  Sender: FDA-Public Use
  Company Number: US-ASTRAZENECA-2013SE87186

PATIENT
  Age: 77 Year
  Sex: Male
  Weight: 74.8 kg

DRUGS (10)
  1. SYMBICORT [Suspect]
     Indication: CHRONIC OBSTRUCTIVE PULMONARY DISEASE
     Dosage: 160/4.5, 2 PUFFS BID
     Route: 055
  2. OMEPRAZOLE [Suspect]
     Indication: ABDOMINAL DISCOMFORT
     Route: 048
  3. POTTASIUM CHLORIDE [Concomitant]
     Indication: SUPPLEMENTATION THERAPY
  4. LEVOTHYROXINE [Concomitant]
     Indication: THYROID DISORDER
     Dates: start: 2013
  5. FERROUS SULFATE [Concomitant]
     Dosage: 325MG 5GR DAILY
     Dates: start: 2013
  6. SIMVASTATIN [Concomitant]
     Indication: BLOOD CHOLESTEROL ABNORMAL
  7. BUPROPIAN [Concomitant]
     Indication: DEPRESSION
     Dates: start: 2008
  8. CLOPIDOGREL [Concomitant]
     Indication: ANTICOAGULANT THERAPY
     Dates: start: 2008
  9. SPIRIVA [Concomitant]
     Indication: CHRONIC OBSTRUCTIVE PULMONARY DISEASE
     Route: 055
  10. XANAX [Concomitant]
     Indication: SLEEP DISORDER

REACTIONS (8)
  - Pneumonia [Recovered/Resolved]
  - Squamous cell carcinoma [Unknown]
  - Walking disability [Unknown]
  - Cerebrovascular accident [Unknown]
  - Anaemia [Unknown]
  - Memory impairment [Unknown]
  - Blood potassium decreased [Unknown]
  - Rash pruritic [Unknown]
